FAERS Safety Report 9297146 (Version 1)
Quarter: 2013Q2

REPORT INFORMATION
  Report Type: Spontaneous
  Country: CH (occurrence: CH)
  Receive Date: 20130520
  Receipt Date: 20130520
  Transmission Date: 20140414
  Serious: Yes (Hospitalization, Other)
  Sender: FDA-Public Use
  Company Number: CH-009507513-1305CHE008892

PATIENT
  Age: 67 Year
  Sex: Female

DRUGS (7)
  1. REMERON [Suspect]
     Indication: DEPRESSION
     Dosage: 15 MG, HALF DOSAGE FORM PER DAY
     Route: 048
  2. FLUCTINE [Suspect]
     Indication: DEPRESSION
     Dosage: 40 MG, 2 DOSAGE FORM PER DAY
     Route: 048
  3. SERESTA [Concomitant]
     Dosage: 15 MG, QID
     Route: 048
     Dates: end: 201212
  4. BENERVA [Concomitant]
     Dosage: 300 MG, BID
     Dates: end: 201212
  5. BECOZYM FORTE [Concomitant]
     Dosage: UNK, BID,FOR:DRAGEE
     Route: 048
  6. PANTOZOL [Concomitant]
     Dosage: 40 MG, QD
     Route: 048
  7. INDERAL [Concomitant]
     Dosage: 20 MG, QD

REACTIONS (4)
  - Renal failure acute [Not Recovered/Not Resolved]
  - Diarrhoea [Unknown]
  - Hyponatraemia [Recovered/Resolved]
  - Confusional state [Recovered/Resolved]
